FAERS Safety Report 4363448-X (Version None)
Quarter: 2004Q2

REPORT INFORMATION
  Report Type: 
  Country: None (occurrence: None)
  Receive Date: 20040524
  Receipt Date: 20040513
  Transmission Date: 20050107
  Serious: Yes (Other)
  Sender: FDA-Public Use
  Company Number: IT-GLAXOSMITHKLINE-B0333409A

PATIENT
  Age: 38 Year
  Sex: Male

DRUGS (2)
  1. RANITIDINE [Suspect]
     Indication: MENDELSON'S SYNDROME
     Dosage: 50MG PER DAY
     Route: 042
     Dates: start: 20040428
  2. KETOPROFEN [Concomitant]
     Dosage: 200MG PER DAY
     Route: 042

REACTIONS (3)
  - FLUSHING [None]
  - LARYNGEAL OEDEMA [None]
  - PRURITUS [None]
